FAERS Safety Report 7392271-7 (Version None)
Quarter: 2011Q2

REPORT INFORMATION
  Report Type: 
  Country: None (occurrence: None)
  Receive Date: 20110404
  Receipt Date: 20110324
  Transmission Date: 20111010
  Serious: Yes (Other)
  Sender: FDA-Public Use
  Company Number: US-ELI_LILLY_AND_COMPANY-US201009006205

PATIENT
  Sex: Female

DRUGS (11)
  1. CYMBALTA [Suspect]
     Indication: DEPRESSION
     Dosage: UNK, UNKNOWN
  2. LIPITOR [Concomitant]
  3. CYMBALTA [Suspect]
     Dosage: 150 MG, UNK
     Dates: end: 20100901
  4. CYMBALTA [Suspect]
     Dosage: 30 MG, QD
     Dates: start: 20100101
  5. CYMBALTA [Suspect]
     Dosage: 60 MG, QD
  6. LITHIUM [Concomitant]
  7. CYMBALTA [Suspect]
     Dosage: 180 MG, QD
     Dates: end: 20100101
  8. DIOVAN [Concomitant]
  9. SYNTHROID [Concomitant]
     Dosage: 50 UG, UNK
  10. ASPIRIN [Concomitant]
  11. CYMBALTA [Suspect]
     Dosage: 60 MG, 2/D

REACTIONS (12)
  - SENSATION OF HEAVINESS [None]
  - BACK PAIN [None]
  - SYNCOPE [None]
  - TRAUMATIC HAEMORRHAGE [None]
  - RENAL DISORDER [None]
  - FEELING ABNORMAL [None]
  - LACERATION [None]
  - LIVER DISORDER [None]
  - OVERDOSE [None]
  - URINE COLOUR ABNORMAL [None]
  - BLOOD PRESSURE INCREASED [None]
  - FALL [None]
